FAERS Safety Report 9338259 (Version 1)
Quarter: 2013Q2

REPORT INFORMATION
  Report Type: Spontaneous
  Country: US (occurrence: None)
  Receive Date: 20130605
  Receipt Date: 20130605
  Transmission Date: 20140414
  Serious: Yes (Life-Threatening, Other)
  Sender: FDA-Public Use
  Company Number: None

PATIENT
  Age: 49 Year
  Sex: Female
  Weight: 78.47 kg

DRUGS (1)
  1. TOPIRAMATE 50 MG [Suspect]
     Dosage: 1/2 PER DAY LAST WK PER DAY ORAL?1 SECOND WEEK PER DAY ORAL
     Route: 048

REACTIONS (10)
  - Burning sensation [None]
  - Pain [None]
  - Paraesthesia [None]
  - Hypoaesthesia [None]
  - Increased appetite [None]
  - Weight increased [None]
  - Constipation [None]
  - Depression [None]
  - Feeling abnormal [None]
  - Thinking abnormal [None]
